FAERS Safety Report 4680068-8 (Version None)
Quarter: 2005Q2

REPORT INFORMATION
  Report Type: 
  Country: None (occurrence: None)
  Receive Date: 20050531
  Receipt Date: 20050523
  Transmission Date: 20051028
  Serious: Yes (Other)
  Sender: FDA-Public Use
  Company Number: 2005060917

PATIENT
  Age: 40 Year
  Sex: Male
  Weight: 110 kg

DRUGS (3)
  1. DOSTINEX [Suspect]
     Indication: PROLACTINOMA
     Dosage: (6 MG, WEEKLY), ORAL
     Route: 048
     Dates: start: 20020201
  2. ENALAPRIL MALEATE [Concomitant]
  3. HIDROLALTESONA (HYDROCORTISONE) [Concomitant]

REACTIONS (2)
  - CHILLBLAINS [None]
  - RAYNAUD'S PHENOMENON [None]
